FAERS Safety Report 17517951 (Version 2)
Quarter: 2020Q3

REPORT INFORMATION
  Report Type: Report from Study
  Country: CA (occurrence: CA)
  Receive Date: 20200309
  Receipt Date: 20200806
  Transmission Date: 20201102
  Serious: Yes (Other)
  Sender: FDA-Public Use
  Company Number: CA-GLAXOSMITHKLINE-CA2020AMR038572

PATIENT
  Sex: Female

DRUGS (9)
  1. SINGULAIR [Suspect]
     Active Substance: MONTELUKAST SODIUM
     Indication: ASTHMA
     Dosage: 10 MG
     Dates: start: 2019
  2. NUCALA [Suspect]
     Active Substance: MEPOLIZUMAB
     Indication: ASTHMA
     Dosage: 100 MG, Z(MONTHLY)
     Dates: start: 20200323
  3. PULMICORT TURBUHALER [Suspect]
     Active Substance: BUDESONIDE
     Dosage: UNK, 1MG/2ML
     Route: 055
     Dates: start: 2014
  4. SALBUTAMOL SULPHATE [Suspect]
     Active Substance: ALBUTEROL SULFATE
     Indication: ASTHMA
     Dosage: 100 MCG, AS NEEDED
     Dates: start: 2013
  5. ALVESCO [Suspect]
     Active Substance: CICLESONIDE
     Indication: ASTHMA
     Dosage: 200 UG
     Dates: start: 2014
  6. AVAMYS [Suspect]
     Active Substance: FLUTICASONE FUROATE
     Indication: NASAL POLYPS
     Dosage: 27.5 UG
     Dates: start: 2019
  7. MOMETASONE [Suspect]
     Active Substance: MOMETASONE
     Indication: NASAL POLYPS
     Dosage: 50 UG
     Dates: start: 2015
  8. PULMICORT TURBUHALER [Suspect]
     Active Substance: BUDESONIDE
     Indication: NASAL POLYPS
     Dosage: UNK UNK, BID
  9. ADVAIR HFA [Suspect]
     Active Substance: FLUTICASONE PROPIONATE\SALMETEROL XINAFOATE
     Indication: ASTHMA
     Dosage: UNK UNK, BID, 2 INHALATIONS, 250/25MCG
     Route: 055
     Dates: start: 2013

REACTIONS (17)
  - Frustration tolerance decreased [Unknown]
  - Wheezing [Unknown]
  - Nasal congestion [Recovering/Resolving]
  - Dyspnoea exertional [Unknown]
  - Sinus congestion [Recovering/Resolving]
  - Glaucoma [Unknown]
  - Chest discomfort [Unknown]
  - Sneezing [Unknown]
  - Asthma [Unknown]
  - Cough [Unknown]
  - Sleep disorder due to a general medical condition [Unknown]
  - Loss of personal independence in daily activities [Unknown]
  - Dyspnoea [Unknown]
  - Upper respiratory tract infection [Recovering/Resolving]
  - Chronic spontaneous urticaria [Unknown]
  - Therapeutic product effect incomplete [Unknown]
  - Upper-airway cough syndrome [Unknown]
